FAERS Safety Report 11585552 (Version 2)
Quarter: 2015Q4

REPORT INFORMATION
  Report Type: Spontaneous
  Country: US (occurrence: US)
  Receive Date: 20151001
  Receipt Date: 20151007
  Transmission Date: 20160304
  Serious: Yes (Hospitalization)
  Sender: FDA-Public Use
  Company Number: US-PFIZER INC-2015319217

PATIENT
  Age: 84 Year
  Sex: Female

DRUGS (2)
  1. GUAIFENESIN. [Suspect]
     Active Substance: GUAIFENESIN
     Dosage: UNK
  2. TUSSIN [Suspect]
     Active Substance: GUAIFENESIN

REACTIONS (3)
  - Pneumonia [Unknown]
  - Upper respiratory tract infection [Unknown]
  - Drug ineffective [Unknown]
